FAERS Safety Report 5717715-5 (Version None)
Quarter: 2008Q2

REPORT INFORMATION
  Report Type: 
  Country: None (occurrence: None)
  Receive Date: 20080425
  Receipt Date: 20080416
  Transmission Date: 20081010
  Serious: Yes (Death, Other)
  Sender: FDA-Public Use
  Company Number: JP-JNJFOC-20040903168

PATIENT
  Sex: Male
  Weight: 54 kg

DRUGS (9)
  1. REMICADE [Suspect]
     Dosage: 5 DOSES RECEIVED
     Route: 042
  2. REMICADE [Suspect]
     Dosage: 5 DOSES RECEIVED
     Route: 042
  3. REMICADE [Suspect]
     Dosage: 5 DOSES RECEIVED
     Route: 042
  4. REMICADE [Suspect]
     Dosage: 5 DOSES RECEIVED
     Route: 042
  5. REMICADE [Suspect]
     Indication: RHEUMATOID ARTHRITIS
     Dosage: 5 DOSES RECEIVED
     Route: 042
  6. RHEUMATREX [Concomitant]
  7. METALCAPTASE [Concomitant]
     Dosage: 2 CAPSULES
  8. CLINORIL [Concomitant]
     Dosage: 3 TABLETS
  9. PYDOXAL [Concomitant]
     Dosage: 2 TABLETS

REACTIONS (2)
  - GASTRIC CANCER [None]
  - HAEMATOCRIT DECREASED [None]
